FAERS Safety Report 5802603-6 (Version None)
Quarter: 2008Q2

REPORT INFORMATION
  Report Type: 
  Country: None (occurrence: None)
  Receive Date: 20080626
  Receipt Date: 20080416
  Transmission Date: 20081010
  Serious: Yes (Hospitalization, Other)
  Sender: FDA-Public Use
  Company Number: US-CVT-080017

PATIENT
  Age: 73 Year
  Sex: Male
  Weight: 61.7 kg

DRUGS (9)
  1. RANEXA [Suspect]
     Indication: ANGINA PECTORIS
     Dosage: 500 MG, BID, ORAL
     Route: 048
     Dates: start: 20080216, end: 20080221
  2. PLAVIX [Concomitant]
  3. METOPROLOL /00376901/(METOPROLOL) [Concomitant]
  4. ASPIRIN [Concomitant]
  5. NORVASC /00972401/ (AMLODIPINE) [Concomitant]
  6. LASIX [Concomitant]
  7. ZESTRIL [Concomitant]
  8. INSULIN /00030501/ (INSULIN) [Concomitant]
  9. EPOGEN [Concomitant]

REACTIONS (4)
  - FATIGUE [None]
  - RENAL FAILURE ACUTE [None]
  - TONGUE AMYLOIDOSIS [None]
  - URINARY TRACT INFECTION BACTERIAL [None]
